FAERS Safety Report 9503036 (Version 1)
Quarter: 2013Q1

REPORT INFORMATION
  Report Type: Spontaneous
  Country: US (occurrence: None)
  Receive Date: 20130225
  Receipt Date: 20130225
  Transmission Date: 20140127
  Serious: Yes (Other)
  Sender: FDA-Public Use
  Company Number: 368678

PATIENT
  Age: 24 Year
  Sex: Female
  Weight: 59 kg

DRUGS (8)
  1. VICTOZA [Suspect]
     Indication: WEIGHT DECREASED
     Route: 058
     Dates: start: 201107, end: 20130106
  2. VICTOZA [Suspect]
     Indication: DECREASED APPETITE
     Route: 058
     Dates: start: 201107, end: 20130106
  3. HUMALOG (INSULIN LISPRO) [Concomitant]
  4. HUMIRA (ADALIMUMAB) [Concomitant]
  5. LISINOPRIL (LISINOPRIL) [Concomitant]
  6. LEVOTHYROXINE (LEVOTHYROXINE) [Concomitant]
  7. EFFEXOR (VENLAFAXINE HYDROCHLORIDE) [Concomitant]
  8. IRON (IRON) [Concomitant]

REACTIONS (2)
  - Nausea [None]
  - Vomiting [None]
